FAERS Safety Report 9447053 (Version 1)
Quarter: 2013Q3

REPORT INFORMATION
  Report Type: Spontaneous
  Country: US (occurrence: US)
  Receive Date: 20130807
  Receipt Date: 20130807
  Transmission Date: 20140515
  Serious: No
  Sender: FDA-Public Use
  Company Number: US-AMGEN-USASP2013053275

PATIENT
  Age: 35 Year
  Sex: Female
  Weight: 138.7 kg

DRUGS (15)
  1. ENBREL [Suspect]
     Indication: PSORIATIC ARTHROPATHY
     Dosage: UNK
     Route: 065
     Dates: end: 20130618
  2. SIMVASTATIN [Concomitant]
     Indication: BLOOD CHOLESTEROL INCREASED
     Dosage: UNK
  3. FENOFIBRATE [Concomitant]
     Indication: BLOOD CHOLESTEROL INCREASED
     Dosage: UNK
  4. ZOLOFT [Concomitant]
     Indication: DEPRESSION
     Dosage: UNK
  5. WELLBUTRIN [Concomitant]
     Indication: DEPRESSION
     Dosage: UNK
  6. PRILOSEC                           /00661201/ [Concomitant]
     Indication: GASTROOESOPHAGEAL REFLUX DISEASE
     Dosage: UNK
  7. PLAQUENIL                          /00072602/ [Concomitant]
     Indication: PSORIATIC ARTHROPATHY
     Dosage: UNK
  8. CYCLOBENZAPRINE [Concomitant]
     Indication: PAIN
     Dosage: UNK
  9. CYCLOBENZAPRINE [Concomitant]
     Indication: SLEEP DISORDER
  10. ULTRAM                             /00599202/ [Concomitant]
     Indication: ARTHRALGIA
     Dosage: UNK
  11. CELEBREX [Concomitant]
     Indication: PSORIATIC ARTHROPATHY
     Dosage: UNK
  12. TOPIRAMATE [Concomitant]
     Indication: HEADACHE
     Dosage: UNK
  13. METHOTREXATE [Concomitant]
     Indication: PSORIATIC ARTHROPATHY
     Dosage: UNK
  14. LEUCOVORIN                         /00566701/ [Concomitant]
     Indication: ARTHRITIS
     Dosage: UNK
  15. TRINESSA [Concomitant]
     Indication: CONTRACEPTION
     Dosage: UNK

REACTIONS (1)
  - Pharyngeal oedema [Recovered/Resolved]
